FAERS Safety Report 5806511-6 (Version None)
Quarter: 2008Q3

REPORT INFORMATION
  Report Type: 
  Country: None (occurrence: None)
  Receive Date: 20080710
  Receipt Date: 20080701
  Transmission Date: 20090109
  Serious: Yes (Other)
  Sender: FDA-Public Use
  Company Number: US-WATSON-2008-02676

PATIENT

DRUGS (7)
  1. ANDRODERM (WATSON LABORATORIES) [Suspect]
     Indication: BLOOD TESTOSTERONE DECREASED
     Dosage: UNK, DAILY
     Route: 062
  2. ANDROGEL [Suspect]
     Indication: BLOOD TESTOSTERONE DECREASED
     Dosage: 7.5 G, DAILY VIA PUMP
     Route: 061
     Dates: start: 20070701
  3. ANDROGEL [Suspect]
     Dosage: 5 G, DAILY VIA PUMP
     Route: 061
     Dates: start: 20070401, end: 20070701
  4. TESTIM [Suspect]
     Indication: BLOOD TESTOSTERONE DECREASED
     Dosage: UNK
     Route: 062
  5. OLMESARTAN MEDOXOMIL [Concomitant]
     Indication: DRUG USE FOR UNKNOWN INDICATION
     Dosage: 20 MG, DAILY
     Route: 065
  6. VARDENAFIL [Concomitant]
     Indication: DRUG USE FOR UNKNOWN INDICATION
     Dosage: UNK, PRN
     Route: 065
  7. SYNTHROID [Concomitant]
     Dosage: UNK, UNKNOWN
     Route: 065

REACTIONS (5)
  - ACROMEGALY [None]
  - ERECTILE DYSFUNCTION [None]
  - PITUITARY TUMOUR BENIGN [None]
  - REACTION TO DRUG EXCIPIENTS [None]
  - WEIGHT DECREASED [None]
